FAERS Safety Report 6927316-9 (Version None)
Quarter: 2010Q3

REPORT INFORMATION
  Report Type: 
  Country: None (occurrence: None)
  Receive Date: 20100817
  Receipt Date: 20100809
  Transmission Date: 20110219
  Serious: No
  Sender: FDA-Public Use
  Company Number: US-BIOGENIDEC-2010BI027623

PATIENT
  Age: 50 Year
  Sex: Female

DRUGS (2)
  1. TYSABRI [Suspect]
     Indication: MULTIPLE SCLEROSIS
     Route: 042
     Dates: start: 20071003, end: 20090729
  2. TYSABRI [Suspect]
     Route: 042
     Dates: start: 20100430

REACTIONS (3)
  - AMNESIA [None]
  - BALANCE DISORDER [None]
  - MUSCULAR WEAKNESS [None]
